FAERS Safety Report 7183597-0 (Version None)
Quarter: 2010Q4

REPORT INFORMATION
  Report Type: 
  Country: None (occurrence: None)
  Receive Date: 20101220
  Receipt Date: 20101220
  Transmission Date: 20110411
  Serious: Yes (Hospitalization)
  Sender: FDA-Public Use
  Company Number: None

PATIENT
  Age: 48 Year
  Sex: Female
  Weight: 90.9 kg

DRUGS (15)
  1. FLUVASTATIN [Suspect]
     Indication: DYSLIPIDAEMIA
     Dosage: 80MG QHS PO  RECENT
     Route: 048
  2. ATENOLOL [Concomitant]
  3. CELEXA [Concomitant]
  4. CLARITIN [Concomitant]
  5. DURAGESIC-50 [Concomitant]
  6. MECLIZINE [Concomitant]
  7. ACTOS [Concomitant]
  8. CALCIUM + VIT D [Concomitant]
  9. DARVOCET [Concomitant]
  10. NEXIUM [Concomitant]
  11. WELLBUTRIN SR [Concomitant]
  12. PHENERGAN [Concomitant]
  13. OSTEOBI-FLEX (ORAL CA + VIT D) [Concomitant]
  14. ALTACE [Concomitant]
  15. NORETHINDRONE [Concomitant]

REACTIONS (3)
  - CHOLESTASIS [None]
  - HYPOKALAEMIA [None]
  - INTERNATIONAL NORMALISED RATIO INCREASED [None]
